FAERS Safety Report 6010273-X (Version None)
Quarter: 2008Q4

REPORT INFORMATION
  Report Type: 
  Country: None (occurrence: None)
  Receive Date: 20081218
  Receipt Date: 20080403
  Transmission Date: 20090506
  Serious: No
  Sender: FDA-Public Use
  Company Number: A0719149A

PATIENT
  Age: 60 Year
  Sex: Male

DRUGS (9)
  1. FLUTICASONE PROPIONATE [Suspect]
     Dosage: 2SPR PER DAY
     Route: 045
     Dates: start: 20070601
  2. ATENOLOL [Concomitant]
  3. IBUPROFEN [Concomitant]
  4. LIPITOR [Concomitant]
  5. DIAZEPAM [Concomitant]
  6. ACIPHEX [Concomitant]
  7. ALBUTEROL [Concomitant]
  8. ULTRAM [Concomitant]
  9. PATANOL [Concomitant]

REACTIONS (1)
  - DRUG INEFFECTIVE [None]
